FAERS Safety Report 14150106 (Version 1)
Quarter: 2017Q4

REPORT INFORMATION
  Report Type: Report from Study
  Country: US (occurrence: US)
  Receive Date: 20171101
  Receipt Date: 20171101
  Transmission Date: 20180321
  Serious: No
  Sender: FDA-Public Use
  Company Number: US-SHIRE-US201726025

PATIENT
  Age: 61 Year
  Sex: Female

DRUGS (1)
  1. GATTEX [Suspect]
     Active Substance: TEDUGLUTIDE\WATER
     Indication: SHORT-BOWEL SYNDROME
     Dosage: 0.17 ML, 1X/DAY:QD
     Route: 058
     Dates: start: 20170919

REACTIONS (3)
  - Abdominal pain upper [Unknown]
  - Alopecia [Unknown]
  - Abdominal distension [Unknown]

NARRATIVE: CASE EVENT DATE: 20170919
